FAERS Safety Report 16889345 (Version 1)
Quarter: 2019Q4

REPORT INFORMATION
  Report Type: Spontaneous
  Country: IN (occurrence: IN)
  Receive Date: 20191007
  Receipt Date: 20191007
  Transmission Date: 20200122
  Serious: Yes (Other)
  Sender: FDA-Public Use
  Company Number: IN-ROCHE-2428065

PATIENT
  Age: 2 Year
  Sex: Male

DRUGS (1)
  1. RANIBIZUMAB. [Suspect]
     Active Substance: RANIBIZUMAB
     Indication: RETINOPATHY OF PREMATURITY
     Dosage: UNK
     Route: 050

REACTIONS (3)
  - Posterior capsule rupture [Unknown]
  - Vitreous prolapse [Unknown]
  - Cataract congenital [Unknown]
